FAERS Safety Report 24323790 (Version 2)
Quarter: 2024Q4

REPORT INFORMATION
  Report Type: Spontaneous
  Country: US (occurrence: US)
  Receive Date: 20240916
  Receipt Date: 20241121
  Transmission Date: 20250115
  Serious: Yes (Hospitalization)
  Sender: SANOFI AVENTIS
  Company Number: US-SA-SAC20240801000132

PATIENT
  Age: 68 Year
  Sex: Female
  Weight: 55.7 kg

DRUGS (11)
  1. DUPIXENT [Suspect]
     Active Substance: DUPILUMAB
     Indication: Dermatitis atopic
     Dosage: 300 MG, QOW
     Route: 058
     Dates: start: 20240625
  2. OMEPRAZOLE [Concomitant]
     Active Substance: OMEPRAZOLE
  3. ESTRADIOL [Concomitant]
     Active Substance: ESTRADIOL
  4. METOPROLOL SUCCINATE [Concomitant]
     Active Substance: METOPROLOL SUCCINATE
  5. ALENDRONATE SODIUM [Concomitant]
     Active Substance: ALENDRONATE SODIUM
  6. PROCHLORPERAZINE MALEATE [Concomitant]
     Active Substance: PROCHLORPERAZINE MALEATE
  7. LINZESS [Concomitant]
     Active Substance: LINACLOTIDE
  8. CARBIDOPA AND LEVODOPA [Concomitant]
     Active Substance: CARBIDOPA\LEVODOPA
  9. WARFARIN [Concomitant]
     Active Substance: WARFARIN
  10. TRAZODONE [Concomitant]
     Active Substance: TRAZODONE HYDROCHLORIDE
  11. ACETAMINOPHEN\TRAMADOL [Concomitant]
     Active Substance: ACETAMINOPHEN\TRAMADOL

REACTIONS (6)
  - Hospitalisation [Unknown]
  - Injection site mass [Not Recovered/Not Resolved]
  - Pain [Not Recovered/Not Resolved]
  - Lack of injection site rotation [Unknown]
  - Injection site rash [Not Recovered/Not Resolved]
  - Injection site pain [Not Recovered/Not Resolved]

NARRATIVE: CASE EVENT DATE: 20240101
